FAERS Safety Report 14002628 (Version 2)
Quarter: 2017Q4

REPORT INFORMATION
  Report Type: Spontaneous
  Country: CH (occurrence: CH)
  Receive Date: 20170922
  Receipt Date: 20171009
  Transmission Date: 20180321
  Serious: Yes (Death, Life-Threatening, Hospitalization, Other)
  Sender: FDA-Public Use
  Company Number: CH-SUN PHARMACEUTICAL INDUSTRIES LTD-2017RR-150383

PATIENT
  Age: 27 Year
  Sex: Male

DRUGS (3)
  1. TRAMADOL. [Suspect]
     Active Substance: TRAMADOL
     Indication: PRODUCT USED FOR UNKNOWN INDICATION
     Route: 048
  2. DIPHENHYDRAMINE. [Suspect]
     Active Substance: DIPHENHYDRAMINE
     Indication: PRODUCT USED FOR UNKNOWN INDICATION
     Dosage: UNK
     Route: 048
  3. HYDROMORPHONE [Suspect]
     Active Substance: HYDROMORPHONE
     Indication: PRODUCT USED FOR UNKNOWN INDICATION
     Dosage: HANDFUL
     Route: 048

REACTIONS (18)
  - Visceral congestion [Unknown]
  - Hypersomnia [Unknown]
  - Hypoglycaemia [Unknown]
  - Myocardial necrosis marker increased [Unknown]
  - Toxicity to various agents [Fatal]
  - Hepatic enzyme increased [Unknown]
  - Unresponsive to stimuli [Unknown]
  - Pulmonary oedema [Unknown]
  - Cardiac arrest [Recovered/Resolved]
  - Pneumonia aspiration [Unknown]
  - Hyperkalaemia [Unknown]
  - Metabolic acidosis [Unknown]
  - Respiratory arrest [Unknown]
  - Snoring [Unknown]
  - Brain oedema [Unknown]
  - Respiratory acidosis [Unknown]
  - Nightmare [Unknown]
  - Renal function test abnormal [Unknown]
